FAERS Safety Report 12404526 (Version 1)
Quarter: 2016Q2

REPORT INFORMATION
  Report Type: Spontaneous
  Country: FR (occurrence: FR)
  Receive Date: 20160525
  Receipt Date: 20160525
  Transmission Date: 20160815
  Serious: Yes (Other)
  Sender: FDA-Public Use
  Company Number: PHHY2016FR070572

PATIENT
  Age: 61 Year
  Sex: Male

DRUGS (1)
  1. ACLASTA [Suspect]
     Active Substance: ZOLEDRONIC ACID
     Indication: OSTEOPOROSIS
     Dosage: 5 MG,ONCE A YEAR
     Route: 042
     Dates: start: 20160126, end: 20160126

REACTIONS (4)
  - Eye pain [Recovered/Resolved]
  - Eyelid oedema [Recovered/Resolved]
  - Lacrimation increased [Recovered/Resolved]
  - Uveitis [Recovered/Resolved]

NARRATIVE: CASE EVENT DATE: 20160130
